FAERS Safety Report 11683568 (Version 1)
Quarter: 2015Q4

REPORT INFORMATION
  Report Type: Spontaneous
  Country: JP (occurrence: JP)
  Receive Date: 20151029
  Receipt Date: 20151029
  Transmission Date: 20160304
  Serious: Yes (Other)
  Sender: FDA-Public Use
  Company Number: JP-JNJFOC-20151016568

PATIENT

DRUGS (2)
  1. INFLIXIMAB, RECOMBINANT [Suspect]
     Active Substance: INFLIXIMAB
     Indication: COLITIS ULCERATIVE
     Route: 042
  2. 5-ASA [Concomitant]
     Active Substance: MESALAMINE
     Route: 065

REACTIONS (3)
  - Colectomy [Unknown]
  - Cytomegalovirus infection [Unknown]
  - Drug resistance [Unknown]
